FAERS Safety Report 25529004 (Version 1)
Quarter: 2025Q3

REPORT INFORMATION
  Report Type: Spontaneous
  Country: CA (occurrence: None)
  Receive Date: 20250707
  Receipt Date: 20250707
  Transmission Date: 20251020
  Serious: Yes (Hospitalization)
  Sender: FDA-CTU
  Company Number: None

PATIENT
  Age: 36 Year
  Sex: Female
  Weight: 74.25 kg

DRUGS (2)
  1. FLUTICASONE FUROATE [Suspect]
     Active Substance: FLUTICASONE FUROATE
     Indication: Ear discomfort
     Dosage: DAILY RESPIRATORY (INHALATION)
     Route: 055
     Dates: start: 20250617, end: 20250618
  2. FLUTICASONE FUROATE [Suspect]
     Active Substance: FLUTICASONE FUROATE
     Indication: Vertigo

REACTIONS (8)
  - Rash [None]
  - Contusion [None]
  - Heart rate increased [None]
  - Dyskinesia [None]
  - Anxiety [None]
  - Suicidal ideation [None]
  - Panic attack [None]
  - Tremor [None]

NARRATIVE: CASE EVENT DATE: 20250617
